FAERS Safety Report 9214888 (Version 1)
Quarter: 2013Q2

REPORT INFORMATION
  Report Type: Spontaneous
  Country: MX (occurrence: MX)
  Receive Date: 20130405
  Receipt Date: 20130405
  Transmission Date: 20140414
  Serious: Yes (Death)
  Sender: FDA-Public Use
  Company Number: MX-GLAXOSMITHKLINE-A1018913A

PATIENT
  Sex: Female

DRUGS (1)
  1. SERETIDE [Suspect]
     Route: 065

REACTIONS (1)
  - Renal failure [Fatal]
